FAERS Safety Report 4762201-2 (Version None)
Quarter: 2005Q3

REPORT INFORMATION
  Report Type: 
  Country: None (occurrence: None)
  Receive Date: 20050906
  Receipt Date: 20050906
  Transmission Date: 20060218
  Serious: Yes (Hospitalization)
  Sender: FDA-Public Use
  Company Number: None

PATIENT
  Age: 46 Year
  Sex: Male
  Weight: 101 kg

DRUGS (4)
  1. FENOFIBRATE [Suspect]
     Indication: HEPATIC STEATOSIS
     Dosage: 1 X /DAY -ORAL (047)
     Route: 048
     Dates: start: 20050329
  2. FENOFIBRATE [Suspect]
     Indication: HYPERCHOLESTEROLAEMIA
     Dosage: 1 X /DAY -ORAL (047)
     Route: 048
     Dates: start: 20050329
  3. LASIX [Concomitant]
  4. ASPIRIN [Concomitant]

REACTIONS (4)
  - CHEST PAIN [None]
  - DYSPNOEA [None]
  - HYPERHIDROSIS [None]
  - NAUSEA [None]
